FAERS Safety Report 8182134-1 (Version None)
Quarter: 2012Q1

REPORT INFORMATION
  Report Type: 
  Country: None (occurrence: None)
  Receive Date: 20120302
  Receipt Date: 20110921
  Transmission Date: 20120608
  Serious: Yes (Other)
  Sender: FDA-Public Use
  Company Number: PHHY2011DE85559

PATIENT
  Sex: Female
  Weight: 80 kg

DRUGS (1)
  1. SANDOSTATIN LAR [Suspect]
     Route: 030

REACTIONS (2)
  - HAEMORRHAGE [None]
  - THROMBIN TIME PROLONGED [None]
